FAERS Safety Report 6234431-4 (Version None)
Quarter: 2009Q2

REPORT INFORMATION
  Report Type: 
  Country: None (occurrence: None)
  Receive Date: 20090618
  Receipt Date: 20090609
  Transmission Date: 20091009
  Serious: Yes (Hospitalization, Other)
  Sender: FDA-Public Use
  Company Number: US-ROCHE-637231

PATIENT
  Age: 63 Year
  Sex: Male

DRUGS (3)
  1. CELLCEPT [Suspect]
     Route: 048
     Dates: start: 19960101
  2. FLU SHOT [Suspect]
     Indication: DRUG USE FOR UNKNOWN INDICATION
     Route: 065
     Dates: start: 20041108
  3. NEORAL [Concomitant]

REACTIONS (4)
  - FACIAL PALSY [None]
  - HERPES ZOSTER [None]
  - NASOPHARYNGITIS [None]
  - PNEUMONIA [None]
